FAERS Safety Report 14964384 (Version 1)
Quarter: 2018Q2

REPORT INFORMATION
  Report Type: Spontaneous
  Country: US (occurrence: US)
  Receive Date: 20180601
  Receipt Date: 20180601
  Transmission Date: 20180711
  Serious: Yes (Life-Threatening, Hospitalization)
  Sender: FDA-Public Use
  Company Number: US-LNK INTERNATIONAL, INC.-2048873

PATIENT
  Sex: Female

DRUGS (3)
  1. ACETAMINOPHEN 500MG, DIPHENHYDRAMINE HCL 25MG FC BLUE CAPLETS [Suspect]
     Active Substance: ACETAMINOPHEN\DIPHENHYDRAMINE HYDROCHLORIDE
  2. ACETAMINOPHEN 500MG FC WHITE CAPLETS [Suspect]
     Active Substance: ACETAMINOPHEN
  3. ACETAMINOPHEN 500MG, DIPHENHYDRAMINE HCL 25MG RAPID RELEASE GELCAPS [Suspect]
     Active Substance: ACETAMINOPHEN\DIPHENHYDRAMINE HYDROCHLORIDE

REACTIONS (2)
  - Liver transplant [None]
  - Hepatic failure [None]
